FAERS Safety Report 10142268 (Version 1)
Quarter: 2014Q2

REPORT INFORMATION
  Report Type: Report from Study
  Country: FR (occurrence: FR)
  Receive Date: 20140430
  Receipt Date: 20140430
  Transmission Date: 20141212
  Serious: Yes (Hospitalization, Other)
  Sender: FDA-Public Use
  Company Number: FR-ROCHE-1389064

PATIENT
  Sex: Male

DRUGS (4)
  1. RITUXIMAB [Suspect]
     Indication: RHEUMATOID ARTHRITIS
     Dosage: (D1)
     Route: 065
     Dates: start: 20090330, end: 20090526
  2. LEFLUNOMIDE [Concomitant]
     Route: 065
     Dates: end: 20120906
  3. ETANERCEPT [Concomitant]
     Dosage: 60 MONTHS
     Route: 065
  4. ETANERCEPT [Concomitant]
     Route: 065
     Dates: start: 20100603

REACTIONS (7)
  - Cardiopulmonary failure [Recovered/Resolved]
  - Arthralgia [Recovered/Resolved]
  - Medical device removal [Recovered/Resolved with Sequelae]
  - Liver function test abnormal [Unknown]
  - Sleep apnoea syndrome [Not Recovered/Not Resolved]
  - Chronic obstructive pulmonary disease [Not Recovered/Not Resolved]
  - Age-related macular degeneration [Not Recovered/Not Resolved]
